FAERS Safety Report 7226258-1 (Version None)
Quarter: 2011Q1

REPORT INFORMATION
  Report Type: 
  Country: None (occurrence: None)
  Receive Date: 20110114
  Receipt Date: 20110105
  Transmission Date: 20110831
  Serious: Yes (Hospitalization, Other)
  Sender: FDA-Public Use
  Company Number: PHHY2009JP24705

PATIENT
  Age: 19 Year
  Sex: Female

DRUGS (10)
  1. VEGETAMIN [Suspect]
     Dosage: 1 DF DAILY
     Route: 048
     Dates: start: 20090326, end: 20090529
  2. LINTON [Concomitant]
     Dosage: 6 DF, UNK
     Route: 048
     Dates: start: 20070101, end: 20090531
  3. LINTON [Concomitant]
     Dosage: 2 DF, UNK
     Route: 048
     Dates: start: 20070101, end: 20090531
  4. PROMETHAZINE HYDROCHLORIDE [Concomitant]
     Dosage: 1 DF, UNK
     Route: 048
     Dates: start: 20070101, end: 20090531
  5. WINTERMIN [Concomitant]
     Dosage: 6 DF, UNK
     Dates: start: 20070101, end: 20090531
  6. TEGRETOL [Suspect]
     Indication: SCHIZOPHRENIA
     Dosage: 3 DF DAILY
     Route: 048
     Dates: start: 20090409, end: 20090529
  7. CONTOMIN [Concomitant]
     Dosage: UNK
     Route: 048
     Dates: start: 20070101, end: 20090531
  8. RISPERDAL [Concomitant]
     Dosage: 3 DF, UNK
     Route: 048
     Dates: start: 20070101, end: 20090531
  9. SEROQUEL [Concomitant]
     Dosage: 3 DF, UNK
     Route: 048
     Dates: start: 20070101, end: 20090531
  10. SEPAZON [Concomitant]
     Dosage: 3 DF, UNK
     Route: 048

REACTIONS (15)
  - TYPE 1 DIABETES MELLITUS [None]
  - DRUG RASH WITH EOSINOPHILIA AND SYSTEMIC SYMPTOMS [None]
  - LIVER DISORDER [None]
  - LYMPHADENOPATHY [None]
  - PYREXIA [None]
  - DIABETIC KETOACIDOSIS [None]
  - BLOOD GLUCOSE INCREASED [None]
  - ALTERED STATE OF CONSCIOUSNESS [None]
  - LYMPHOCYTE MORPHOLOGY ABNORMAL [None]
  - URINE KETONE BODY PRESENT [None]
  - GENERALISED ERYTHEMA [None]
  - BLOOD KETONE BODY PRESENT [None]
  - HEPATIC FUNCTION ABNORMAL [None]
  - METABOLIC ACIDOSIS [None]
  - RASH [None]
